FAERS Safety Report 26201217 (Version 1)
Quarter: 2025Q4

REPORT INFORMATION
  Report Type: Spontaneous
  Country: US (occurrence: US)
  Receive Date: 20251226
  Receipt Date: 20251226
  Transmission Date: 20260117
  Serious: No
  Sender: LEO PHARM
  Company Number: US-LEO Pharma-385188

PATIENT
  Age: 64 Year
  Sex: Male

DRUGS (2)
  1. ADBRY [Suspect]
     Active Substance: TRALOKINUMAB-LDRM
     Indication: Eczema
     Dosage: TREATMENT ONGOING??TITRATION DOSING:?ADBRY 300 MG/2 ML PEN, INJECT 2 PENS (600MG) UNDER THE SKIN FOR
     Route: 058
     Dates: start: 20251010
  2. ADBRY [Suspect]
     Active Substance: TRALOKINUMAB-LDRM
     Indication: Eczema
     Dosage: TREATMENT ONGOING??TITRATION DOSING:?ADBRY 300 MG/2 ML PEN, INJECT 2 PENS (600MG) UNDER THE SKIN FOR
     Route: 058

REACTIONS (6)
  - Eczema [Unknown]
  - Skin exfoliation [Unknown]
  - Loss of personal independence in daily activities [Unknown]
  - Mood altered [Unknown]
  - Pruritus [Unknown]
  - Initial insomnia [Unknown]
